FAERS Safety Report 8418065-9 (Version None)
Quarter: 2012Q2

REPORT INFORMATION
  Report Type: 
  Country: None (occurrence: None)
  Receive Date: 20120604
  Receipt Date: 20120604
  Transmission Date: 20120825
  Serious: Yes (Hospitalization)
  Sender: FDA-Public Use
  Company Number: None

PATIENT
  Age: 25 Year
  Sex: Male

DRUGS (1)
  1. DEGREE MEN DEODORANT CLEAN REACTION [Suspect]
     Indication: HYPERHIDROSIS
     Dosage: ONE TIME UNDER ARMS
     Dates: start: 20100403, end: 20100405

REACTIONS (11)
  - URTICARIA [None]
  - ECONOMIC PROBLEM [None]
  - RASH [None]
  - MALAISE [None]
  - STRESS [None]
  - IMPAIRED WORK ABILITY [None]
  - APPLICATION SITE SCAR [None]
  - STAPHYLOCOCCAL INFECTION [None]
  - APPLICATION SITE FOLLICULITIS [None]
  - APPLICATION SITE RASH [None]
  - ACNE [None]
